FAERS Safety Report 10169567 (Version 1)
Quarter: 2014Q2

REPORT INFORMATION
  Report Type: Spontaneous
  Country: CN (occurrence: CN)
  Receive Date: 20140513
  Receipt Date: 20140513
  Transmission Date: 20141212
  Serious: Yes (Other)
  Sender: FDA-Public Use
  Company Number: CN-BAXTER-2014BAX023300

PATIENT
  Age: 62 Year
  Sex: Male
  Weight: 51 kg

DRUGS (4)
  1. 0.9% SODIUM CHLORIDE INJECTION [Suspect]
     Indication: MEDICATION DILUTION
     Route: 041
     Dates: start: 20131030, end: 20131030
  2. 0.9% SODIUM CHLORIDE INJECTION [Suspect]
     Route: 042
     Dates: start: 20131030, end: 20131030
  3. RITUXAN [Suspect]
     Indication: CHEMOTHERAPY
     Route: 041
     Dates: start: 20131030, end: 20131030
  4. RITUXAN [Suspect]
     Indication: NON-HODGKIN^S LYMPHOMA
     Route: 042
     Dates: start: 20131030, end: 20131030

REACTIONS (2)
  - Chills [Recovered/Resolved]
  - Pyrexia [Recovered/Resolved]
